FAERS Safety Report 7942959-1 (Version None)
Quarter: 2011Q4

REPORT INFORMATION
  Report Type: 
  Country: None (occurrence: None)
  Receive Date: 20111128
  Receipt Date: 20111122
  Transmission Date: 20120403
  Serious: Yes (Hospitalization, Disabling)
  Sender: FDA-Public Use
  Company Number: US-MERCK-1105USA03755

PATIENT
  Age: 55 Year
  Sex: Female

DRUGS (7)
  1. FOSAMAX [Suspect]
     Indication: OSTEOPOROSIS
     Route: 048
     Dates: start: 20040101, end: 20051101
  2. METHOTREXATE [Concomitant]
     Route: 065
     Dates: start: 20050101
  3. FOLIC ACID [Concomitant]
     Route: 065
     Dates: start: 20050101
  4. CALCIUM (UNSPECIFIED) AND VITAMIN D (UNSPECIFIED) [Concomitant]
     Route: 065
  5. ENBREL [Concomitant]
     Route: 065
     Dates: start: 20050101
  6. PREDNISONE [Concomitant]
     Route: 065
     Dates: start: 20050101, end: 20100101
  7. FOSAMAX PLUS D [Suspect]
     Indication: OSTEOPOROSIS
     Route: 048
     Dates: start: 20050101, end: 20080501

REACTIONS (6)
  - ARTHROPATHY [None]
  - HYPERTENSION [None]
  - IMPAIRED HEALING [None]
  - ARTHRITIS [None]
  - FEMUR FRACTURE [None]
  - SPLEEN DISORDER [None]
